FAERS Safety Report 9741574 (Version 2)
Quarter: 2013Q4

REPORT INFORMATION
  Report Type: Spontaneous
  Country: VN (occurrence: VN)
  Receive Date: 20131210
  Receipt Date: 20131217
  Transmission Date: 20140711
  Serious: Yes (Hospitalization, Other)
  Sender: FDA-Public Use
  Company Number: VN-ROCHE-1315863

PATIENT
  Sex: Female

DRUGS (2)
  1. ACTEMRA [Suspect]
     Indication: RHEUMATOID ARTHRITIS
     Route: 041
     Dates: start: 20131107
  2. MOBIC [Concomitant]
     Route: 048

REACTIONS (3)
  - Thrombocytopenia [Recovered/Resolved]
  - Haemorrhagic fever [Recovered/Resolved]
  - Hyperglycaemia [Recovered/Resolved]
